FAERS Safety Report 18152266 (Version 1)
Quarter: 2020Q3

REPORT INFORMATION
  Report Type: Spontaneous
  Country: IT (occurrence: IT)
  Receive Date: 20200814
  Receipt Date: 20200814
  Transmission Date: 20201103
  Serious: Yes (Other)
  Sender: FDA-Public Use
  Company Number: IT-MYLANLABS-2020M1070676

PATIENT
  Age: 78 Year
  Sex: Male
  Weight: 55 kg

DRUGS (1)
  1. PIPERACILLINA E TAZOBACTAM MYLAN GENERICS [Suspect]
     Active Substance: PIPERACILLIN SODIUM\TAZOBACTAM SODIUM
     Indication: INFECTION
     Dosage: 4.5 MILLIGRAM, QD
     Route: 042
     Dates: start: 20200730, end: 20200731

REACTIONS (2)
  - Drug-induced liver injury [Not Recovered/Not Resolved]
  - Hepatocellular injury [Not Recovered/Not Resolved]
